FAERS Safety Report 11713702 (Version 1)
Quarter: 2015Q4

REPORT INFORMATION
  Report Type: Spontaneous
  Country: US (occurrence: None)
  Receive Date: 20151106
  Receipt Date: 20151106
  Transmission Date: 20160304
  Serious: Yes (Life-Threatening)
  Sender: FDA-Public Use
  Company Number: None

PATIENT
  Age: 61 Year
  Sex: Female
  Weight: 83.92 kg

DRUGS (2)
  1. CLAREDIN [Concomitant]
  2. PULMICORT TURBUHALER [Suspect]
     Active Substance: BUDESONIDE
     Indication: ASTHMA
     Dosage: 1 PUFF TWICE A D AY  INHALED
     Route: 055

REACTIONS (4)
  - Dyspnoea [None]
  - Respiratory disorder [None]
  - Apnoea [None]
  - Insomnia [None]
